FAERS Safety Report 9011749 (Version 2)
Quarter: 2013Q1

REPORT INFORMATION
  Report Type: Spontaneous
  Country: US (occurrence: None)
  Receive Date: 20121228
  Receipt Date: 20130128
  Transmission Date: 20140127
  Serious: Yes (Disabling, Other)
  Sender: FDA-Public Use
  Company Number: 2012P1067208

PATIENT
  Age: 65 Year
  Sex: Female
  Weight: 62.6 kg

DRUGS (7)
  1. MECLIZINE HCL TABLETS USP 25 MG [Suspect]
     Indication: DIZZINESS
     Route: 048
     Dates: start: 20120403, end: 20120502
  2. MECLIZINE HCL TABLETS USP 25 MG [Suspect]
     Indication: MENIERE^S DISEASE
     Route: 048
     Dates: start: 20120403, end: 20120502
  3. TRICOR [Concomitant]
  4. NIASPAN (NIACIN EXTENDED RELEASE) 500MG [Concomitant]
  5. SYNTHROID [Concomitant]
  6. FLEXERIL (CYCLOBENZAPRINE) [Concomitant]
  7. FLURAZEPAM [Concomitant]

REACTIONS (13)
  - Cognitive disorder [None]
  - Amnesia [None]
  - Abnormal behaviour [None]
  - Crying [None]
  - Hypoacusis [None]
  - Confusional state [None]
  - Stress [None]
  - Off label use [None]
  - Nystagmus [None]
  - Headache [None]
  - Ear discomfort [None]
  - Tinnitus [None]
  - Vomiting [None]
